FAERS Safety Report 5217894-2 (Version None)
Quarter: 2007Q1

REPORT INFORMATION
  Report Type: 
  Country: None (occurrence: None)
  Receive Date: 20070124
  Receipt Date: 20070115
  Transmission Date: 20070707
  Serious: Yes (Other)
  Sender: FDA-Public Use
  Company Number: US-ABBOTT-07P-163-0356045-00

PATIENT

DRUGS (2)
  1. DEPAKOTE [Suspect]
     Indication: MYOCLONIC EPILEPSY
     Route: 065
  2. LAMOTRIGINE [Suspect]
     Indication: MYOCLONIC EPILEPSY
     Route: 048

REACTIONS (2)
  - GRAND MAL CONVULSION [None]
  - MYOCLONUS [None]
